FAERS Safety Report 4694876-0 (Version None)
Quarter: 2005Q2

REPORT INFORMATION
  Report Type: 
  Country: None (occurrence: None)
  Receive Date: 20050617
  Receipt Date: 20050611
  Transmission Date: 20051028
  Serious: Yes (Other)
  Sender: FDA-Public Use
  Company Number: 2005042128

PATIENT
  Age: 74 Year
  Sex: Male
  Weight: 87.9978 kg

DRUGS (12)
  1. NEURONTIN [Suspect]
     Indication: PAIN IN EXTREMITY
     Dosage: 200 MG (100 MG), ORAL
     Route: 048
     Dates: start: 20030101
  2. CELEBREX [Suspect]
     Indication: ARTHRITIS
     Dosage: 200 MG (100 MG, 2 IN 1 D), ORAL
     Route: 048
     Dates: start: 20030101
  3. COZARR (LOSARTAN POTASSIUM) [Concomitant]
  4. SYNTHROID [Concomitant]
  5. NORVASC [Concomitant]
  6. ZANTAC [Concomitant]
  7. ATENOLOL [Concomitant]
  8. FUROSEMIDE [Concomitant]
  9. PRAVACHOL [Concomitant]
  10. ULTRACET [Concomitant]
  11. TRANXENE [Concomitant]
  12. ASPIRIN [Concomitant]

REACTIONS (6)
  - BLOOD DISORDER [None]
  - CHEST WALL PAIN [None]
  - DRUG EFFECT DECREASED [None]
  - METASTASES TO LUNG [None]
  - PHARMACEUTICAL PRODUCT COMPLAINT [None]
  - SARCOMA [None]
